FAERS Safety Report 8781447 (Version 2)
Quarter: 2013Q4

REPORT INFORMATION
  Report Type: Report from Study
  Country: US (occurrence: US)
  Receive Date: 20120913
  Receipt Date: 20131031
  Transmission Date: 20140711
  Serious: No
  Sender: FDA-Public Use
  Company Number: US-009507513-2010SP019904

PATIENT
  Age: 35 Year
  Sex: Female

DRUGS (4)
  1. REBETOL [Suspect]
     Indication: HEPATITIS C
     Dosage: 1000 MG, UNKNOWN
     Route: 065
  2. PEG-INTRON [Suspect]
     Indication: HEPATITIS C
     Dosage: UNK
  3. MINERALS (UNSPECIFIED) (+) VITAMINS (UNSPECIFIED) [Concomitant]
     Indication: PREGNANCY
     Dosage: 1, UPDATE(22JUN2011)
     Route: 065
  4. ZOLOFT [Concomitant]
     Indication: ANXIETY
     Dosage: UPDATE(22JUN2011)
     Route: 065

REACTIONS (2)
  - Exposure via father [Recovered/Resolved]
  - No adverse event [Unknown]
